FAERS Safety Report 9357535 (Version 2)
Quarter: 2013Q2

REPORT INFORMATION
  Report Type: Spontaneous
  Country: DE (occurrence: DE)
  Receive Date: 20130620
  Receipt Date: 20130628
  Transmission Date: 20140414
  Serious: Yes (Other)
  Sender: FDA-Public Use
  Company Number: DE-UCBSA-088776

PATIENT
  Age: 84 Year
  Sex: Male
  Weight: 75 kg

DRUGS (1)
  1. VIMPAT [Suspect]
     Dosage: TOTAL AMOUNT: 600 MG
     Route: 042
     Dates: start: 20130606, end: 20130606

REACTIONS (2)
  - Accidental exposure to product [Recovered/Resolved]
  - Overdose [Recovered/Resolved]
